FAERS Safety Report 8122412-5 (Version None)
Quarter: 2012Q1

REPORT INFORMATION
  Report Type: 
  Country: None (occurrence: None)
  Receive Date: 20120208
  Receipt Date: 20120130
  Transmission Date: 20120608
  Serious: Yes (Death)
  Sender: FDA-Public Use
  Company Number: JP-GLAXOSMITHKLINE-B0779108A

PATIENT
  Sex: Male

DRUGS (3)
  1. CHINESE MEDICINE [Concomitant]
     Indication: INFLUENZA
     Dosage: 5.01MG PER DAY
     Route: 048
     Dates: start: 20120128
  2. COCARL [Concomitant]
     Indication: HEADACHE
     Route: 048
     Dates: start: 20120128
  3. RELENZA [Suspect]
     Indication: INFLUENZA
     Dosage: 20MG PER DAY
     Route: 055
     Dates: start: 20120128

REACTIONS (2)
  - ERYTHEMA [None]
  - CARDIAC DEATH [None]
